FAERS Safety Report 15792603 (Version 1)
Quarter: 2019Q1

REPORT INFORMATION
  Report Type: Spontaneous
  Country: FR (occurrence: FR)
  Receive Date: 20190107
  Receipt Date: 20190107
  Transmission Date: 20190417
  Serious: Yes (Hospitalization)
  Sender: FDA-Public Use
  Company Number: FR-TEVA-2019-FR-995505

PATIENT
  Age: 42 Year
  Sex: Female

DRUGS (1)
  1. ETHINYLESTRADIOL / LEVONORGESTREL [Suspect]
     Active Substance: ETHINYL ESTRADIOL\LEVONORGESTREL
     Indication: ORAL CONTRACEPTION
     Dosage: 1 DOSAGE FORM EVERY 1 CYCLE
     Route: 048
     Dates: end: 200911

REACTIONS (2)
  - Deep vein thrombosis [Recovered/Resolved]
  - Peripheral artery thrombosis [Recovered/Resolved]

NARRATIVE: CASE EVENT DATE: 200912
